FAERS Safety Report 9644689 (Version 1)
Quarter: 2013Q4

REPORT INFORMATION
  Report Type: Spontaneous
  Country: US (occurrence: US)
  Receive Date: 20131025
  Receipt Date: 20131025
  Transmission Date: 20140711
  Serious: No
  Sender: FDA-Public Use
  Company Number: US-009507513-1310USA007630

PATIENT
  Age: 47 Year
  Sex: Female
  Weight: 84.81 kg

DRUGS (6)
  1. NEXPLANON [Suspect]
     Indication: CONTRACEPTION
     Dosage: UNK
     Route: 059
     Dates: start: 20130621
  2. CARVEDILOL [Concomitant]
  3. QUINAPRIL HYDROCHLORIDE [Concomitant]
  4. NIFEDICAL [Concomitant]
  5. LEVOTHYROXINE SODIUM [Concomitant]
     Route: 048
  6. COLCRYS [Concomitant]

REACTIONS (1)
  - Menorrhagia [Not Recovered/Not Resolved]
